FAERS Safety Report 12853973 (Version 2)
Quarter: 2016Q4

REPORT INFORMATION
  Report Type: Spontaneous
  Country: US (occurrence: US)
  Receive Date: 20161017
  Receipt Date: 20161031
  Transmission Date: 20170207
  Serious: Yes (Other)
  Sender: FDA-Public Use
  Company Number: US-PFIZER INC-2016479174

PATIENT

DRUGS (1)
  1. PROTONIX [Suspect]
     Active Substance: PANTOPRAZOLE SODIUM

REACTIONS (3)
  - Abdominal pain upper [Unknown]
  - Gastrointestinal wall abnormal [Unknown]
  - Haemorrhage [Unknown]
